FAERS Safety Report 7920267-2 (Version None)
Quarter: 2011Q4

REPORT INFORMATION
  Report Type: 
  Country: None (occurrence: None)
  Receive Date: 20111117
  Receipt Date: 20111111
  Transmission Date: 20120403
  Serious: Yes (Other)
  Sender: FDA-Public Use
  Company Number: US-ROCHE-798329

PATIENT
  Sex: Female

DRUGS (8)
  1. MEDOXICAM [Concomitant]
     Indication: RHEUMATOID ARTHRITIS
     Route: 048
     Dates: start: 20090101, end: 20110821
  2. AMOXICILLIN [Concomitant]
     Indication: PHARYNGITIS
     Route: 048
     Dates: start: 20110721, end: 20110801
  3. ACTEMRA [Suspect]
     Indication: RHEUMATOID ARTHRITIS
     Route: 042
     Dates: start: 20100922, end: 20110725
  4. LANSOPRAZOLE [Concomitant]
     Indication: DYSPEPSIA
     Route: 048
     Dates: start: 20091001, end: 20110821
  5. TRAMADOL HYDROCHLORIDE/ACETAMINOPHEN [Concomitant]
     Indication: RHEUMATOID ARTHRITIS
     Route: 048
     Dates: start: 20100730, end: 20110821
  6. FOLIC ACID [Concomitant]
     Indication: PROPHYLAXIS
     Route: 048
  7. DIMENHYDRINAT [Concomitant]
     Indication: NAUSEA
     Route: 048
     Dates: start: 20101201, end: 20110821
  8. METHOTREXATE [Suspect]
     Indication: RHEUMATOID ARTHRITIS
     Dosage: DOSE: BLINDED, FORM: NOT REPORTED
     Route: 048
     Dates: start: 20100922, end: 20110815

REACTIONS (2)
  - PREGNANCY [None]
  - ABORTION SPONTANEOUS [None]
